FAERS Safety Report 8084315-4 (Version None)
Quarter: 2012Q1

REPORT INFORMATION
  Report Type: 
  Country: None (occurrence: None)
  Receive Date: 20120128
  Receipt Date: 20110307
  Transmission Date: 20120608
  Serious: No
  Sender: FDA-Public Use
  Company Number: US-ABBOTT-11P-163-0710077-00

PATIENT
  Age: 39 Year
  Sex: Female

DRUGS (6)
  1. PREDNISONE TAB [Concomitant]
     Indication: COLITIS
  2. IRON [Concomitant]
     Indication: PRODUCT USED FOR UNKNOWN INDICATION
  3. HUMIRA [Suspect]
     Indication: COLITIS
     Dosage: LOADING DOSE 160 MG
     Dates: start: 20110303
  4. MERCAPTOPURINE [Concomitant]
     Indication: COLITIS
  5. FOLIC ACID [Concomitant]
     Indication: PRODUCT USED FOR UNKNOWN INDICATION
  6. SIMVASTATIN [Concomitant]
     Indication: BLOOD CHOLESTEROL

REACTIONS (3)
  - PYREXIA [None]
  - CHILLS [None]
  - DIZZINESS [None]
